FAERS Safety Report 12104426 (Version 2)
Quarter: 2016Q1

REPORT INFORMATION
  Report Type: Spontaneous
  Country: FR (occurrence: FR)
  Receive Date: 20160223
  Receipt Date: 20160307
  Transmission Date: 20160526
  Serious: Yes (Hospitalization)
  Sender: FDA-Public Use
  Company Number: FR-ACTELION-A-CH2016-131633

PATIENT
  Age: 41 Year
  Sex: Male

DRUGS (3)
  1. TRACLEER [Suspect]
     Active Substance: BOSENTAN
     Indication: PULMONARY ARTERIAL HYPERTENSION
     Route: 048
  2. VELETRI [Suspect]
     Active Substance: EPOPROSTENOL
     Indication: PULMONARY ARTERIAL HYPERTENSION
     Dosage: UNK
     Route: 042
     Dates: start: 20151207
  3. ADCIRCA [Concomitant]
     Active Substance: TADALAFIL

REACTIONS (9)
  - Sepsis [Recovered/Resolved]
  - Acinetobacter test positive [Unknown]
  - Pyrexia [Recovered/Resolved]
  - Chills [Recovered/Resolved]
  - Catheter site infection [Recovered/Resolved]
  - Klebsiella test positive [Unknown]
  - Catheter site extravasation [Recovered/Resolved]
  - Systemic infection [Recovered/Resolved]
  - Catheter site haemorrhage [Recovered/Resolved]

NARRATIVE: CASE EVENT DATE: 20160118
